FAERS Safety Report 9646098 (Version 2)
Quarter: 2013Q4

REPORT INFORMATION
  Report Type: Report from Study
  Country: BR (occurrence: BR)
  Receive Date: 20131025
  Receipt Date: 20131231
  Transmission Date: 20140711
  Serious: Yes (Hospitalization, Other)
  Sender: FDA-Public Use
  Company Number: PHHY2013BR120380

PATIENT
  Age: 69 Year
  Sex: Male

DRUGS (2)
  1. DIOVAN HCT [Suspect]
     Indication: BLOOD PRESSURE INADEQUATELY CONTROLLED
     Dosage: 1 DF,(80 MG VASLA/12.5 MG HCT) DAILY
     Route: 048
  2. DIOVAN HCT [Suspect]
     Dosage: 1 DF (80 MG VASLA/12.5 MG HCT) DAILY
     Route: 048

REACTIONS (5)
  - Upper limb fracture [Not Recovered/Not Resolved]
  - Wrist fracture [Not Recovered/Not Resolved]
  - Gait disturbance [Not Recovered/Not Resolved]
  - Fall [Not Recovered/Not Resolved]
  - Hypothyroidism [Recovering/Resolving]
